FAERS Safety Report 11868602 (Version 1)
Quarter: 2015Q4

REPORT INFORMATION
  Report Type: Spontaneous
  Country: FR (occurrence: FR)
  Receive Date: 20151225
  Receipt Date: 20151225
  Transmission Date: 20160305
  Serious: Yes (Hospitalization)
  Sender: FDA-Public Use
  Company Number: FR-ROCHE-1683363

PATIENT
  Age: 37 Year
  Sex: Female

DRUGS (5)
  1. NEURONTIN [Concomitant]
     Active Substance: GABAPENTIN
     Route: 048
     Dates: start: 201503, end: 201504
  2. NEURONTIN [Concomitant]
     Active Substance: GABAPENTIN
     Dosage: TWO DOSES: MORNING AND EVENING
     Route: 048
  3. ATARAX [Concomitant]
     Active Substance: HYDROXYZINE\HYDROXYZINE HYDROCHLORIDE
     Route: 048
     Dates: start: 201503, end: 201504
  4. NEURONTIN [Concomitant]
     Active Substance: GABAPENTIN
     Dosage: TWO DOSES: MORNING AND EVENING, TWO DOSES: MIDDAY AND EVENING
     Route: 048
     Dates: start: 201503, end: 201504
  5. MABTHERA [Suspect]
     Active Substance: RITUXIMAB
     Indication: PRODUCT USED FOR UNKNOWN INDICATION
     Route: 065
     Dates: start: 201403, end: 20150521

REACTIONS (2)
  - Neurosensory hypoacusis [Not Recovered/Not Resolved]
  - Deafness [Not Recovered/Not Resolved]

NARRATIVE: CASE EVENT DATE: 201503
